FAERS Safety Report 18572378 (Version 1)
Quarter: 2020Q4

REPORT INFORMATION
  Report Type: Report from Study
  Country: US (occurrence: US)
  Receive Date: 20201202
  Receipt Date: 20201202
  Transmission Date: 20210114
  Serious: Yes (Other)
  Sender: FDA-Public Use
  Company Number: US-JAZZ-2020-US-015981

PATIENT
  Sex: Female

DRUGS (14)
  1. XYREM [Suspect]
     Active Substance: SODIUM OXYBATE
     Dosage: DOSE ADJUSTMENT
     Route: 048
     Dates: start: 201905, end: 202006
  2. WELLBUTRIN [Concomitant]
     Active Substance: BUPROPION HYDROCHLORIDE
     Dosage: 300 MG
     Dates: end: 20190430
  3. XYREM [Suspect]
     Active Substance: SODIUM OXYBATE
     Indication: NARCOLEPSY
     Dosage: 2.25 GRAM, BID
     Route: 048
     Dates: start: 201703, end: 201703
  4. ADDERALL [Concomitant]
     Active Substance: AMPHETAMINE ASPARTATE\AMPHETAMINE SULFATE\DEXTROAMPHETAMINE SACCHARATE\DEXTROAMPHETAMINE SULFATE
     Indication: PRODUCT USED FOR UNKNOWN INDICATION
     Dosage: UNK
     Dates: end: 20200430
  5. TRAZODONE [Concomitant]
     Active Substance: TRAZODONE HYDROCHLORIDE
     Indication: PRODUCT USED FOR UNKNOWN INDICATION
     Dosage: UNK
     Dates: end: 20190430
  6. XYREM [Suspect]
     Active Substance: SODIUM OXYBATE
     Dosage: DOSE ADJUSTMENT
     Route: 048
     Dates: start: 201703, end: 201707
  7. XYREM [Suspect]
     Active Substance: SODIUM OXYBATE
     Dosage: 4.5 GRAM, BID
     Route: 048
     Dates: start: 201707, end: 201709
  8. XYREM [Suspect]
     Active Substance: SODIUM OXYBATE
     Dosage: 5 GRAM, FIRST DOSE
     Route: 048
     Dates: start: 202006
  9. WELLBUTRIN [Concomitant]
     Active Substance: BUPROPION HYDROCHLORIDE
     Indication: PRODUCT USED FOR UNKNOWN INDICATION
     Dosage: 100 MG
  10. XYREM [Suspect]
     Active Substance: SODIUM OXYBATE
     Dosage: 2.25 GRAM, BID
     Route: 048
     Dates: start: 201905, end: 201905
  11. XYREM [Suspect]
     Active Substance: SODIUM OXYBATE
     Dosage: 4 GRAM, SECOND DOSE
     Route: 048
     Dates: start: 202006
  12. MODAFINIL. [Concomitant]
     Active Substance: MODAFINIL
     Indication: PRODUCT USED FOR UNKNOWN INDICATION
  13. COMBIGAN [Concomitant]
     Active Substance: BRIMONIDINE TARTRATE\TIMOLOL MALEATE
     Indication: PRODUCT USED FOR UNKNOWN INDICATION
  14. IRON [Concomitant]
     Active Substance: IRON
     Indication: PRODUCT USED FOR UNKNOWN INDICATION

REACTIONS (1)
  - Arthropathy [Not Recovered/Not Resolved]
